FAERS Safety Report 12713975 (Version 1)
Quarter: 2016Q3

REPORT INFORMATION
  Report Type: Spontaneous
  Country: NO (occurrence: NO)
  Receive Date: 20160905
  Receipt Date: 20160905
  Transmission Date: 20161109
  Serious: Yes (Other)
  Sender: FDA-Public Use
  Company Number: NO-ORION CORPORATION ORION PHARMA-16_00001887

PATIENT
  Age: 18 Year
  Sex: Male
  Weight: 71 kg

DRUGS (7)
  1. VORAXAZE [Suspect]
     Active Substance: GLUCARPIDASE
     Indication: TOXICITY TO VARIOUS AGENTS
     Route: 065
     Dates: start: 20160713, end: 20160713
  2. NEURONTIN [Concomitant]
     Active Substance: GABAPENTIN
     Indication: PAIN
     Route: 048
     Dates: start: 201604
  3. METHOTREXATE (TRADE NAME UNKNOWN) [Suspect]
     Active Substance: METHOTREXATE
     Indication: OSTEOSARCOMA
     Dosage: HIGH DOSE
     Route: 042
     Dates: start: 20160712, end: 20160712
  4. DEXAMETHASON [Concomitant]
     Active Substance: DEXAMETHASONE
     Route: 048
     Dates: start: 20160712, end: 20160715
  5. LEUCOVORIN. [Concomitant]
     Active Substance: LEUCOVORIN
     Indication: DRUG CLEARANCE DECREASED
     Route: 065
     Dates: start: 20160713, end: 20160713
  6. OXYCODONE ACTAVIS [Concomitant]
     Indication: PAIN
     Route: 048
     Dates: start: 201604
  7. APREPITANT. [Concomitant]
     Active Substance: APREPITANT
     Route: 048
     Dates: start: 20160712, end: 20160715

REACTIONS (5)
  - Drug clearance decreased [Unknown]
  - Renal failure [Recovered/Resolved]
  - Aspartate aminotransferase increased [Unknown]
  - Rebound effect [Unknown]
  - Alanine aminotransferase increased [Unknown]

NARRATIVE: CASE EVENT DATE: 20160713
